FAERS Safety Report 18010557 (Version 6)
Quarter: 2020Q3

REPORT INFORMATION
  Report Type: Spontaneous
  Country: CN (occurrence: CN)
  Receive Date: 20200711
  Receipt Date: 20200916
  Transmission Date: 20201103
  Serious: Yes (Life-Threatening, Hospitalization, Other)
  Sender: FDA-Public Use
  Company Number: NVSC2020CN193605

PATIENT
  Sex: Female

DRUGS (2)
  1. OXCARBAZEPINE. [Concomitant]
     Active Substance: OXCARBAZEPINE
     Indication: SEIZURE
     Dosage: UNK
     Route: 065
  2. TEGRETOL [Suspect]
     Active Substance: CARBAMAZEPINE
     Indication: EPILEPSY
     Dosage: 0.5 DF, 2?3 TIMES PER DAY
     Route: 048
     Dates: start: 20200618, end: 20200629

REACTIONS (17)
  - Skin ulcer [Recovering/Resolving]
  - Erythema multiforme [Recovering/Resolving]
  - Urinary tract infection [Unknown]
  - Ulcer [Recovering/Resolving]
  - Skin lesion [Unknown]
  - Wrong technique in product usage process [Unknown]
  - Erythema [Unknown]
  - Pruritus [Unknown]
  - Pyrexia [Unknown]
  - Intentional product use issue [Unknown]
  - Blister [Unknown]
  - Tonsillitis bacterial [Unknown]
  - Pneumonia [Unknown]
  - Rash [Unknown]
  - Hepatic failure [Unknown]
  - Cutaneous symptom [Recovered/Resolved]
  - Skin discolouration [Unknown]

NARRATIVE: CASE EVENT DATE: 20200628
